FAERS Safety Report 6338630-2 (Version None)
Quarter: 2009Q3

REPORT INFORMATION
  Report Type: 
  Country: None (occurrence: None)
  Receive Date: 20090903
  Receipt Date: 20070521
  Transmission Date: 20100115
  Serious: Yes (Other)
  Sender: FDA-Public Use
  Company Number: US-ASTRAZENECA-2006UW26520

PATIENT
  Age: 34 Year
  Sex: Male
  Weight: 90.7 kg

DRUGS (21)
  1. SEROQUEL [Suspect]
     Indication: INSOMNIA
     Route: 048
     Dates: start: 20000701
  2. SEROQUEL [Suspect]
     Dosage: 200 - 600 MG DAILY
     Route: 048
     Dates: start: 20010429
  3. CLOZARIL [Concomitant]
     Dates: start: 19990101
  4. GEODON [Concomitant]
     Dates: start: 20000101
  5. WELLBUTRIN SR [Concomitant]
     Route: 048
     Dates: start: 20020115
  6. ZONEGRAN [Concomitant]
     Dates: start: 20020115
  7. HUMULIN R [Concomitant]
     Dosage: 30 UNITS - 70 UNITS
     Dates: start: 19980908
  8. REMERON [Concomitant]
     Indication: DEPRESSIVE SYMPTOM
     Dates: start: 20001025
  9. XANAX [Concomitant]
     Dosage: 2- 8 MG DAILY
     Dates: start: 20060817
  10. CATAPRES [Concomitant]
     Dates: start: 20060902
  11. COMPAZINE [Concomitant]
     Dosage: AS REQUIRED
     Dates: start: 20060902
  12. PROTONIX [Concomitant]
     Dates: start: 20010429
  13. ZELNORM [Concomitant]
     Dates: start: 20051011
  14. TRAZODONE [Concomitant]
     Dates: start: 20060902
  15. CYMBALTA [Concomitant]
     Dates: start: 20060902
  16. NIFEDIPINE [Concomitant]
     Dates: start: 20010501
  17. RANITIDINE HCL [Concomitant]
     Dates: start: 20070628
  18. ALDACTAZIDE [Concomitant]
     Indication: SWELLING
     Dosage: STRENGTH - 20 - 25 MG, DOSE - TAKE ONE EACH MORNING
     Dates: start: 20070628
  19. NEURONTIN [Concomitant]
     Dates: start: 20070525
  20. MONOPRIL [Concomitant]
     Dates: start: 20070529
  21. SIMETHICONE [Concomitant]
     Dates: start: 20060902

REACTIONS (8)
  - DIABETES MELLITUS [None]
  - DIABETIC GASTROPARESIS [None]
  - DIABETIC NEPHROPATHY [None]
  - DIABETIC NEUROPATHY [None]
  - DIABETIC RETINOPATHY [None]
  - KETOACIDOSIS [None]
  - PANCREATITIS [None]
  - VISION BLURRED [None]
